FAERS Safety Report 23110614 (Version 1)
Quarter: 2023Q4

REPORT INFORMATION
  Report Type: Spontaneous
  Country: JP (occurrence: JP)
  Receive Date: 20231026
  Receipt Date: 20231026
  Transmission Date: 20240110
  Serious: Yes (Other)
  Sender: FDA-Public Use
  Company Number: JP-Eisai-202308384_LEN_P_1

PATIENT
  Sex: Male

DRUGS (9)
  1. LENVIMA [Suspect]
     Active Substance: LENVATINIB
     Indication: Thyroid cancer
     Dosage: FREQUENCY UNKNOWN
     Route: 048
     Dates: start: 20190109, end: 20190203
  2. LENVIMA [Suspect]
     Active Substance: LENVATINIB
     Dosage: FREQUENCY UNKNOWN
     Route: 048
     Dates: start: 20190204, end: 20190225
  3. LENVIMA [Suspect]
     Active Substance: LENVATINIB
     Dosage: BETWEEN MONDAY AND FRIDAY ORAL ADMINISTRATION, INTERRUPTION ON SATURDAY AND SUNDAY
     Route: 048
     Dates: start: 20190708, end: 20190805
  4. LENVIMA [Suspect]
     Active Substance: LENVATINIB
     Dosage: BETWEEN MONDAY AND FRIDAY ORAL ADMINISTRATION, INTERRUPTION ON SATURDAY AND SUNDAY
     Route: 048
     Dates: start: 20190806, end: 20191028
  5. LENVIMA [Suspect]
     Active Substance: LENVATINIB
     Dosage: BETWEEN MONDAY AND FRIDAY ORAL ADMINISTRATION, INTERRUPTION ON SATURDAY AND SUNDAY
     Route: 048
     Dates: start: 20191029, end: 20201123
  6. LENVIMA [Suspect]
     Active Substance: LENVATINIB
     Dosage: BETWEEN MONDAY AND FRIDAY ORAL ADMINISTRATION, INTERRUPTION ON SATURDAY AND SUNDAY
     Route: 048
     Dates: start: 20201124, end: 20210118
  7. LENVIMA [Suspect]
     Active Substance: LENVATINIB
     Dosage: BETWEEN MONDAY AND FRIDAY ORAL ADMINISTRATION, INTERRUPTION ON SATURDAY AND SUNDAY
     Route: 048
     Dates: start: 20210119, end: 20220808
  8. LENVIMA [Suspect]
     Active Substance: LENVATINIB
     Route: 048
     Dates: start: 20220809, end: 20221002
  9. ZOMETA [Concomitant]
     Active Substance: ZOLEDRONIC ACID
     Indication: Thyroid cancer
     Dosage: DOSE AND FREQUENCY UNKNOWN
     Route: 065
     Dates: start: 201906, end: 202108

REACTIONS (1)
  - Myelodysplastic syndrome [Unknown]

NARRATIVE: CASE EVENT DATE: 20220517
